FAERS Safety Report 5481931-0 (Version None)
Quarter: 2007Q4

REPORT INFORMATION
  Report Type: 
  Country: None (occurrence: None)
  Receive Date: 20071010
  Receipt Date: 20071005
  Transmission Date: 20080405
  Serious: Yes (Death, Disabling, Other)
  Sender: FDA-Public Use
  Company Number: US-MERCK-0709USA04017

PATIENT
  Sex: Male

DRUGS (1)
  1. JANUVIA [Suspect]
     Route: 048

REACTIONS (6)
  - ACTINOMYCOSIS [None]
  - DEATH [None]
  - LYMPHOMA [None]
  - NODULE ON EXTREMITY [None]
  - PAIN [None]
  - RENAL FAILURE ACUTE [None]
